FAERS Safety Report 9408598 (Version 1)
Quarter: 2013Q3

REPORT INFORMATION
  Report Type: Spontaneous
  Country: US (occurrence: US)
  Receive Date: 20130718
  Receipt Date: 20130718
  Transmission Date: 20140515
  Serious: No
  Sender: FDA-Public Use
  Company Number: US-ASTELLAS-2013US006110

PATIENT
  Sex: Male

DRUGS (3)
  1. VESICARE [Suspect]
     Indication: URGE INCONTINENCE
     Dosage: 5 MG, UID/QD
     Route: 048
     Dates: end: 20121022
  2. VESICARE [Suspect]
     Indication: BENIGN PROSTATIC HYPERPLASIA
  3. VESICARE [Suspect]
     Indication: LOWER URINARY TRACT SYMPTOMS

REACTIONS (7)
  - Off label use [Unknown]
  - Drug ineffective [Unknown]
  - Swelling [Unknown]
  - Visual impairment [Unknown]
  - Dry eye [Unknown]
  - Constipation [Unknown]
  - Vision blurred [Unknown]
